FAERS Safety Report 11587745 (Version 1)
Quarter: 2015Q4

REPORT INFORMATION
  Report Type: Report from Study
  Country: BR (occurrence: BR)
  Receive Date: 20151001
  Receipt Date: 20151001
  Transmission Date: 20160304
  Serious: Yes (Death, Hospitalization, Other)
  Sender: FDA-Public Use
  Company Number: BR-ABBVIE-15K-020-1472405-00

PATIENT
  Sex: Male

DRUGS (1)
  1. HUMIRA [Suspect]
     Active Substance: ADALIMUMAB
     Indication: PSORIASIS
     Route: 058
     Dates: start: 2013, end: 2014

REACTIONS (6)
  - Abdominal pain upper [Unknown]
  - Renal failure [Unknown]
  - Dysuria [Unknown]
  - Gastritis [Unknown]
  - Malaise [Unknown]
  - Hepatic neoplasm [Fatal]
